FAERS Safety Report 7206112-1 (Version None)
Quarter: 2010Q4

REPORT INFORMATION
  Report Type: 
  Country: None (occurrence: None)
  Receive Date: 20101217
  Receipt Date: 20101208
  Transmission Date: 20110411
  Serious: Yes (Death, Hospitalization)
  Sender: FDA-Public Use
  Company Number: 2010AC000230

PATIENT
  Age: 85 Year
  Sex: Female

DRUGS (27)
  1. DIGOXIN [Suspect]
     Dosage: .125 MG;QD;PO
     Route: 048
     Dates: start: 20061031
  2. DIGOXIN [Suspect]
     Dosage: 0.125 MG;QD;PO
     Route: 048
     Dates: start: 20040601, end: 20080101
  3. METOPROLOL [Concomitant]
  4. COUMADIN [Concomitant]
  5. PLAVIX [Concomitant]
  6. ASPIRIN [Concomitant]
  7. LASIX [Concomitant]
  8. POTASSIUM [Concomitant]
  9. NAMENDA [Concomitant]
  10. INTEGRILIN [Concomitant]
  11. LORAZEPAM [Concomitant]
  12. ARICEPT [Concomitant]
  13. NITROGLYCEIRN [Concomitant]
  14. CRESTOR [Concomitant]
  15. ZETIA [Concomitant]
  16. POTASSIUM CHLORIDE [Concomitant]
  17. LEVOTHYROXINE [Concomitant]
  18. CLOPIDOGREL [Concomitant]
  19. CANDESARTAN [Concomitant]
  20. RANEXA [Concomitant]
  21. PREVACID [Concomitant]
  22. TYLENOL-500 [Concomitant]
  23. REGLAN [Concomitant]
  24. LIPITOR [Concomitant]
  25. ZOLOFT [Concomitant]
  26. METAMUCIL-2 [Concomitant]
  27. NITROSTAT [Concomitant]

REACTIONS (37)
  - ABDOMINAL PAIN UPPER [None]
  - ABNORMAL BEHAVIOUR [None]
  - ACUTE MYOCARDIAL INFARCTION [None]
  - ANGINA PECTORIS [None]
  - ANHEDONIA [None]
  - ANXIETY [None]
  - APNOEA [None]
  - ATRIAL FIBRILLATION [None]
  - BLOOD CREATININE INCREASED [None]
  - BLOOD GLUCOSE INCREASED [None]
  - BLOOD PRESSURE DECREASED [None]
  - BLOOD UREA INCREASED [None]
  - BRADYCARDIA [None]
  - CARDIAC ARREST [None]
  - CONFUSIONAL STATE [None]
  - CONSTIPATION [None]
  - CORONARY ARTERY DISEASE [None]
  - DECREASED APPETITE [None]
  - DEFORMITY [None]
  - DEHYDRATION [None]
  - DEMENTIA [None]
  - ECONOMIC PROBLEM [None]
  - ELECTROCARDIOGRAM ABNORMAL [None]
  - FLUID RETENTION [None]
  - GASTROENTERITIS VIRAL [None]
  - HALLUCINATION, VISUAL [None]
  - HYPERTENSIVE CRISIS [None]
  - HYPOPHAGIA [None]
  - INJURY [None]
  - MENTAL STATUS CHANGES [None]
  - PAIN [None]
  - PAIN IN EXTREMITY [None]
  - PERIPHERAL VASCULAR DISORDER [None]
  - PLATELET COUNT DECREASED [None]
  - RENAL ARTERY STENOSIS [None]
  - SICK SINUS SYNDROME [None]
  - SINUS TACHYCARDIA [None]
